FAERS Safety Report 9266147 (Version 1)
Quarter: 2013Q2

REPORT INFORMATION
  Report Type: Spontaneous
  Country: DE (occurrence: DE)
  Receive Date: 20130502
  Receipt Date: 20130502
  Transmission Date: 20140414
  Serious: Yes (Death, Other)
  Sender: FDA-Public Use
  Company Number: DE-ROCHE-1219618

PATIENT
  Age: 52 Year
  Sex: Female

DRUGS (12)
  1. DIAZEPAM [Suspect]
     Indication: PRODUCT USED FOR UNKNOWN INDICATION
     Route: 065
  2. DOXEPIN [Interacting]
     Indication: PRODUCT USED FOR UNKNOWN INDICATION
     Route: 065
  3. DOXEPIN [Interacting]
     Route: 065
  4. DOXEPIN [Interacting]
     Route: 065
  5. PROTHIPENDYL [Interacting]
     Indication: PRODUCT USED FOR UNKNOWN INDICATION
     Route: 065
  6. PROTHIPENDYL [Interacting]
     Dosage: DOUBLED DOSE
     Route: 065
  7. AMLODIPINE [Interacting]
     Indication: PRODUCT USED FOR UNKNOWN INDICATION
     Route: 065
  8. AMLODIPINE [Interacting]
     Route: 065
  9. AMLODIPINE [Interacting]
     Route: 065
  10. OLANZAPINE [Interacting]
     Indication: PRODUCT USED FOR UNKNOWN INDICATION
     Route: 065
  11. TILIDINE [Interacting]
     Indication: PRODUCT USED FOR UNKNOWN INDICATION
     Route: 065
  12. IBUPROFEN [Interacting]
     Indication: PRODUCT USED FOR UNKNOWN INDICATION
     Route: 065

REACTIONS (2)
  - Toxicity to various agents [Fatal]
  - Drug interaction [Not Recovered/Not Resolved]
